FAERS Safety Report 7643871-8 (Version None)
Quarter: 2011Q3

REPORT INFORMATION
  Report Type: 
  Country: None (occurrence: None)
  Receive Date: 20110729
  Receipt Date: 20101018
  Transmission Date: 20111222
  Serious: Yes (Hospitalization)
  Sender: FDA-Public Use
  Company Number: US-GLAXOSMITHKLINE-A0887400A

PATIENT
  Sex: Female

DRUGS (5)
  1. AMERGE [Suspect]
     Indication: MIGRAINE
     Route: 048
  2. IMITREX [Suspect]
     Indication: MIGRAINE
     Route: 048
  3. IMITREX [Suspect]
     Route: 045
  4. TYLENOL W/ CODEINE NO. 3 [Concomitant]
  5. TYLOX [Concomitant]

REACTIONS (1)
  - DRUG INEFFECTIVE [None]
